FAERS Safety Report 7141595-7 (Version None)
Quarter: 2010Q4

REPORT INFORMATION
  Report Type: 
  Country: None (occurrence: None)
  Receive Date: 20101207
  Receipt Date: 20101118
  Transmission Date: 20110411
  Serious: Yes (Hospitalization)
  Sender: FDA-Public Use
  Company Number: FR-PFIZER INC-2010152814

PATIENT
  Age: 10 Year
  Sex: Female

DRUGS (2)
  1. ADVIL [Suspect]
     Indication: OROPHARYNGEAL PAIN
  2. ADVIL [Suspect]
     Indication: PYREXIA

REACTIONS (3)
  - HAEMATURIA [None]
  - POLYURIA [None]
  - RENAL TUBULAR DISORDER [None]
